FAERS Safety Report 5450865-X (Version None)
Quarter: 2007Q3

REPORT INFORMATION
  Report Type: 
  Country: None (occurrence: None)
  Receive Date: 20070911
  Receipt Date: 20070828
  Transmission Date: 20080115
  Serious: Yes (Hospitalization)
  Sender: FDA-Public Use
  Company Number: 2007BI011961

PATIENT
  Age: 53 Year
  Sex: Male
  Weight: 77 kg

DRUGS (10)
  1. NATALIZUMAB [Suspect]
     Indication: MULTIPLE SCLEROSIS
     Dosage: 300 MG; QM; IV
     Route: 042
     Dates: start: 20070215, end: 20070101
  2. AVONEX [Concomitant]
  3. BACLOFEN [Concomitant]
  4. ROBAXIN [Concomitant]
  5. ATARAX [Concomitant]
  6. MORPHINE [Concomitant]
  7. NEURONTIN [Concomitant]
  8. LORTAB [Concomitant]
  9. DETROL [Concomitant]
  10. INDERAL [Concomitant]

REACTIONS (11)
  - CONSTIPATION [None]
  - EXTRADURAL ABSCESS [None]
  - INTERVERTEBRAL DISCITIS [None]
  - MUSCLE ABSCESS [None]
  - OSTEOMYELITIS [None]
  - PARAPLEGIA [None]
  - PATHOLOGICAL FRACTURE [None]
  - SPINAL CORD COMPRESSION [None]
  - SPINAL DISORDER [None]
  - STAPHYLOCOCCAL INFECTION [None]
  - STAPHYLOCOCCAL SEPSIS [None]
